FAERS Safety Report 21865602 (Version 2)
Quarter: 2023Q1

REPORT INFORMATION
  Report Type: Spontaneous
  Country: DE (occurrence: DE)
  Receive Date: 20230116
  Receipt Date: 20230202
  Transmission Date: 20230417
  Serious: Yes (Life-Threatening, Other)
  Sender: FDA-Public Use
  Company Number: DE-ROCHE-3252038

PATIENT
  Age: 68 Year
  Sex: Female

DRUGS (24)
  1. BENDAMUSTINE HYDROCHLORIDE [Suspect]
     Active Substance: BENDAMUSTINE HYDROCHLORIDE
     Indication: Diffuse large B-cell lymphoma
     Dosage: (R-BENDAMUSTIN, 1ST LINE)
     Route: 042
     Dates: start: 20181203, end: 20200218
  2. BENDAMUSTINE HYDROCHLORIDE [Suspect]
     Active Substance: BENDAMUSTINE HYDROCHLORIDE
     Indication: Follicular lymphoma
     Dosage: (R-POLATUZUMAB-BENDAMUSTIN, 5TH LINE)
     Route: 042
     Dates: start: 202207, end: 202210
  3. DOXORUBICIN HYDROCHLORIDE [Suspect]
     Active Substance: DOXORUBICIN HYDROCHLORIDE
     Indication: Diffuse large B-cell lymphoma
     Dosage: R-CHOP, 2ND LINE) CHOP
     Route: 065
     Dates: start: 202007, end: 202012
  4. PREDNISONE [Suspect]
     Active Substance: PREDNISONE
     Indication: Diffuse large B-cell lymphoma
     Dosage: R-CHOP, 2ND LINE) CHOP
     Route: 065
     Dates: start: 202007, end: 202012
  5. VINCRISTINE SULFATE [Suspect]
     Active Substance: VINCRISTINE SULFATE
     Indication: Diffuse large B-cell lymphoma
     Dosage: R-CHOP, 2ND LINE) CHOP
     Route: 065
     Dates: start: 202007, end: 202012
  6. CISPLATIN [Suspect]
     Active Substance: CISPLATIN
     Indication: Diffuse large B-cell lymphoma
     Dosage: ( R-DHAP, 3RD LINE)DHAP
     Route: 065
     Dates: start: 20210111, end: 20210228
  7. DEXAMETHASONE [Suspect]
     Active Substance: DEXAMETHASONE
     Indication: Diffuse large B-cell lymphoma
     Dosage: ( R-DHAP, 3RD LINE)DHAP
     Route: 065
     Dates: start: 20210111, end: 20210228
  8. CYCLOPHOSPHAMIDE [Suspect]
     Active Substance: CYCLOPHOSPHAMIDE
     Indication: Diffuse large B-cell lymphoma
     Dosage: R-CHOP, 2ND LINE) CHOP
     Route: 065
     Dates: start: 202007, end: 202012
  9. CYTARABINE [Suspect]
     Active Substance: CYTARABINE
     Indication: Diffuse large B-cell lymphoma
     Dosage: ( R-DHAP, 3RD LINE)DHAP
     Route: 065
     Dates: start: 20210111, end: 20210228
  10. POLATUZUMAB VEDOTIN [Suspect]
     Active Substance: POLATUZUMAB VEDOTIN
     Indication: Diffuse large B-cell lymphoma
     Dosage: (R-POLATUZUMAB-BENDAMUSTIN, 5TH LINE)
     Route: 065
     Dates: start: 202207, end: 202210
  11. RITUXIMAB [Suspect]
     Active Substance: RITUXIMAB
     Indication: Diffuse large B-cell lymphoma
     Dosage: (R-BENDAMUSTIN, 1ST TIME)
     Route: 065
     Dates: start: 20181203, end: 20200218
  12. RITUXIMAB [Suspect]
     Active Substance: RITUXIMAB
     Indication: Follicular lymphoma
     Dosage: (R-CHOP, 2ND LINE)
     Route: 065
     Dates: start: 202007, end: 202012
  13. RITUXIMAB [Suspect]
     Active Substance: RITUXIMAB
     Dosage: (R-DHAP, 3RD LINE)
     Route: 065
     Dates: start: 20210111, end: 20210228
  14. RITUXIMAB [Suspect]
     Active Substance: RITUXIMAB
     Dosage: (R-POLATUZUMAB-BENDAMUSTIN, 5TH LINE)
     Route: 065
     Dates: start: 202207, end: 202210
  15. PANTOPRAZOLE SODIUM [Concomitant]
     Active Substance: PANTOPRAZOLE SODIUM
     Indication: Product used for unknown indication
     Route: 065
  16. ACYCLOVIR [Concomitant]
     Active Substance: ACYCLOVIR
     Indication: Product used for unknown indication
     Route: 065
  17. ALBUTEROL [Concomitant]
     Active Substance: ALBUTEROL
     Indication: Product used for unknown indication
     Dosage: 1.25/0 0.25
     Route: 065
  18. Emser [Concomitant]
     Indication: Product used for unknown indication
     Route: 065
  19. PANCREATIN [Concomitant]
     Active Substance: PANCRELIPASE
     Indication: Product used for unknown indication
     Route: 065
  20. SULFAMETHOXAZOLE\TRIMETHOPRIM [Concomitant]
     Active Substance: SULFAMETHOXAZOLE\TRIMETHOPRIM
     Indication: Product used for unknown indication
     Route: 065
  21. TINZAPARIN SODIUM [Concomitant]
     Active Substance: TINZAPARIN SODIUM
     Indication: Product used for unknown indication
     Dosage: 3.500 ANTI-XA I.E./0,35ML
     Route: 065
  22. SODIUM BICARBONATE [Concomitant]
     Active Substance: SODIUM BICARBONATE
     Indication: Product used for unknown indication
     Route: 065
  23. LENALIDOMIDE [Concomitant]
     Active Substance: LENALIDOMIDE
     Indication: Product used for unknown indication
     Route: 065
  24. RESONIUM [Concomitant]
     Active Substance: SODIUM POLYSTYRENE SULFONATE
     Indication: Product used for unknown indication
     Route: 065

REACTIONS (4)
  - Mechanical ileus [Recovered/Resolved]
  - Ileus [Recovered/Resolved]
  - Malignant neoplasm progression [Not Recovered/Not Resolved]
  - Off label use [Unknown]

NARRATIVE: CASE EVENT DATE: 20181203
